FAERS Safety Report 10492238 (Version 1)
Quarter: 2014Q4

REPORT INFORMATION
  Report Type: Spontaneous
  Country: US (occurrence: US)
  Receive Date: 20141002
  Receipt Date: 20141002
  Transmission Date: 20150528
  Serious: No
  Sender: FDA-Public Use
  Company Number: US-GLAXOSMITHKLINE-A1067496A

PATIENT
  Age: 77 Year
  Sex: Male

DRUGS (3)
  1. ADVAIR HFA [Suspect]
     Active Substance: FLUTICASONE PROPIONATE\SALMETEROL XINAFOATE
     Indication: BRONCHITIS CHRONIC
     Dosage: 1PUFF TWICE PER DAY
     Route: 055
     Dates: start: 20140131
  2. LEVALBUTEROL [Suspect]
     Active Substance: LEVALBUTEROL
     Dosage: .5NEB TWICE PER DAY
     Dates: start: 2013, end: 201402
  3. NO CONCURRENT MEDICATIONS [Concomitant]
     Active Substance: UNSPECIFIED INGREDIENT

REACTIONS (5)
  - Fatigue [Unknown]
  - Headache [Unknown]
  - Blood pressure increased [Recovered/Resolved]
  - Malaise [Unknown]
  - Drug interaction [Unknown]

NARRATIVE: CASE EVENT DATE: 2014
